FAERS Safety Report 9604104 (Version 2)
Quarter: 2013Q4

REPORT INFORMATION
  Report Type: Report from Study
  Country: ES (occurrence: ES)
  Receive Date: 20131008
  Receipt Date: 20131127
  Transmission Date: 20140711
  Serious: Yes (Hospitalization)
  Sender: FDA-Public Use
  Company Number: ES-SHIRE-ALL1-2013-06743

PATIENT
  Age: 41 Year
  Sex: Male

DRUGS (8)
  1. ICATIBANT [Suspect]
     Indication: HEREDITARY ANGIOEDEMA
     Dosage: UNK, AS REQ^D
     Route: 058
     Dates: start: 20090907
  2. RAPAMUNE [Suspect]
     Indication: IMMUNOSUPPRESSION
     Dosage: 1 MG, OTHER (24 HOURS)
     Route: 048
     Dates: start: 20110603
  3. URBASON /00049603/ [Suspect]
     Indication: IMMUNOSUPPRESSION
     Dosage: 4 MG, 2X/DAY:BID (12 HOURS)
     Route: 048
     Dates: start: 20110603
  4. UNSPECIFIED INGREDIENT [Concomitant]
     Indication: ANTIBIOTIC THERAPY
     Dosage: 250 MG, OTHER (12 HOURS)
     Route: 048
     Dates: start: 20110603
  5. PANTOPRAZOL [Concomitant]
     Indication: GASTRITIS PROPHYLAXIS
     Dosage: 40 MG, 1X/DAY:QD
     Route: 048
     Dates: start: 20110603
  6. ESERTIA [Concomitant]
     Indication: DEPRESSION
     Dosage: 10 MG, OTHER (24 HOURS)
     Route: 048
     Dates: start: 20110603
  7. LEXATIN /00424801/ [Concomitant]
     Indication: ANXIETY
     Dosage: 1.5 MG, OTHER (24 HOURS)
     Route: 048
     Dates: start: 20110603
  8. BERINERT [Concomitant]
     Indication: HEREDITARY ANGIOEDEMA
     Dosage: 1000 MG, OTHER (96 HOURS)
     Route: 048
     Dates: start: 20110831

REACTIONS (3)
  - Neutropenia [Recovered/Resolved]
  - Sepsis [Recovered/Resolved]
  - Distributive shock [Recovered/Resolved]
